FAERS Safety Report 6726849-8 (Version None)
Quarter: 2010Q2

REPORT INFORMATION
  Report Type: 
  Country: None (occurrence: None)
  Receive Date: 20100517
  Receipt Date: 20100507
  Transmission Date: 20101027
  Serious: Yes (Hospitalization)
  Sender: FDA-Public Use
  Company Number: GB-BIOGENIDEC-2010BI002901

PATIENT
  Age: 33 Year
  Sex: Male

DRUGS (6)
  1. TYSABRI [Suspect]
     Indication: MULTIPLE SCLEROSIS
     Dates: start: 20080507, end: 20090101
  2. TYSABRI [Suspect]
     Dates: end: 20100101
  3. TYSABRI [Suspect]
     Dates: start: 20100101
  4. DETRUSITOL [Concomitant]
  5. RANITIDINE [Concomitant]
  6. PARACETAMOL [Concomitant]

REACTIONS (3)
  - CONDITION AGGRAVATED [None]
  - CONVULSION [None]
  - MULTIPLE SCLEROSIS [None]
